FAERS Safety Report 9749372 (Version 1)
Quarter: 2013Q4

REPORT INFORMATION
  Report Type: Spontaneous
  Country: US (occurrence: US)
  Receive Date: 20131212
  Receipt Date: 20131212
  Transmission Date: 20140711
  Serious: Yes (Hospitalization)
  Sender: FDA-Public Use
  Company Number: US-B.I. PHARMACEUTICALS,INC./RIDGEFIELD-2013-BI-41122BP

PATIENT
  Sex: 0

DRUGS (1)
  1. PRADAXA [Suspect]
     Route: 048
     Dates: start: 2010, end: 2010

REACTIONS (1)
  - Gastrointestinal haemorrhage [Recovered/Resolved]
